FAERS Safety Report 9187358 (Version 1)
Quarter: 2013Q1

REPORT INFORMATION
  Report Type: Spontaneous
  Country: US (occurrence: US)
  Receive Date: 20130325
  Receipt Date: 20130325
  Transmission Date: 20140127
  Serious: Yes (Hospitalization)
  Sender: FDA-Public Use
  Company Number: US-BAYER-2013-036864

PATIENT
  Age: 35 Year
  Sex: Female
  Weight: 140 kg

DRUGS (10)
  1. YAZ [Suspect]
     Indication: MENORRHAGIA
  2. VICODIN [Concomitant]
  3. IBUPROFEN [Concomitant]
  4. CEFTIN [Concomitant]
  5. LEVOTHYROXINE [Concomitant]
  6. PROTONIX [Concomitant]
  7. LEXAPRO [Concomitant]
  8. VITAMIN C [Concomitant]
  9. GLUCOSAMINE [Concomitant]
  10. XANAX [Concomitant]

REACTIONS (1)
  - Pulmonary embolism [Recovered/Resolved]
